FAERS Safety Report 5264974-1 (Version None)
Quarter: 2007Q1

REPORT INFORMATION
  Report Type: 
  Country: None (occurrence: None)
  Receive Date: 20070314
  Receipt Date: 20070306
  Transmission Date: 20070707
  Serious: Yes (Hospitalization)
  Sender: FDA-Public Use
  Company Number: FR-ROCHE-481479

PATIENT
  Age: 68 Year
  Sex: Female

DRUGS (8)
  1. PEG-INTERFERON ALFA 2A (RO 25-8310) [Suspect]
     Route: 058
     Dates: start: 20060810, end: 20070124
  2. RIBAVIRIN [Suspect]
     Route: 048
     Dates: start: 20060810, end: 20070124
  3. BLINDED THYMOSIN ALFA 1 [Suspect]
     Route: 058
     Dates: start: 20060810, end: 20070124
  4. LOZOL [Concomitant]
     Indication: HYPERTENSION
     Route: 048
     Dates: start: 20050615
  5. MEDIATOR [Concomitant]
     Indication: HYPERLIPIDAEMIA
     Route: 048
     Dates: start: 20040615
  6. ROHYPNOL [Concomitant]
     Indication: INSOMNIA
     Route: 048
  7. THERALENE [Concomitant]
  8. BUFLOMEDIL [Concomitant]

REACTIONS (1)
  - TRANSIENT ISCHAEMIC ATTACK [None]
